FAERS Safety Report 12291949 (Version 6)
Quarter: 2016Q3

REPORT INFORMATION
  Report Type: Report from Study
  Country: US (occurrence: US)
  Receive Date: 20160421
  Receipt Date: 20160826
  Transmission Date: 20161109
  Serious: Yes (Other)
  Sender: FDA-Public Use
  Company Number: US-AMGEN-USASL2016036330

PATIENT
  Age: 60 Year
  Sex: Female

DRUGS (9)
  1. REPATHA [Suspect]
     Active Substance: EVOLOCUMAB
     Indication: HYPERCHOLESTEROLAEMIA
     Dosage: 140 MG, Q2WK
     Route: 065
     Dates: start: 20151008
  2. PLAVIX [Concomitant]
     Active Substance: CLOPIDOGREL BISULFATE
     Route: 065
  3. EPIPEN [Concomitant]
     Active Substance: EPINEPHRINE
     Indication: HYPERSENSITIVITY
  4. REPATHA [Suspect]
     Active Substance: EVOLOCUMAB
     Dosage: UNK
     Route: 065
  5. OMEPRAZOLE. [Concomitant]
     Active Substance: OMEPRAZOLE
     Route: 065
  6. REPATHA [Suspect]
     Active Substance: EVOLOCUMAB
     Dosage: UNK
     Route: 065
  7. CETIRIZINE [Concomitant]
     Active Substance: CETIRIZINE HYDROCHLORIDE
  8. ALBUMIN [Concomitant]
     Active Substance: ALBUMIN HUMAN
     Route: 065
  9. LORATADINE. [Concomitant]
     Active Substance: LORATADINE

REACTIONS (26)
  - Pain [Unknown]
  - Limb discomfort [Unknown]
  - Head discomfort [Unknown]
  - Depression [Not Recovered/Not Resolved]
  - Feeling of despair [Unknown]
  - Musculoskeletal discomfort [Unknown]
  - Adverse drug reaction [Unknown]
  - Myalgia [Unknown]
  - Contraindicated product administered [Unknown]
  - Mobility decreased [Unknown]
  - Activities of daily living impaired [Unknown]
  - Cardiac disorder [Unknown]
  - Asthenia [Unknown]
  - Urticaria [Unknown]
  - Abnormal clotting factor [Unknown]
  - Suicidal ideation [Unknown]
  - Impaired quality of life [Unknown]
  - Chest pain [Unknown]
  - Incorrect product storage [Unknown]
  - Injection site pain [Unknown]
  - Sleep disorder due to a general medical condition [Unknown]
  - Low density lipoprotein decreased [Unknown]
  - Injection site haemorrhage [Unknown]
  - Drug dose omission [Unknown]
  - Cough [Unknown]
  - Rotator cuff syndrome [Unknown]

NARRATIVE: CASE EVENT DATE: 20160731
